FAERS Safety Report 4280459-3 (Version None)
Quarter: 2004Q1

REPORT INFORMATION
  Report Type: 
  Country: None (occurrence: None)
  Receive Date: 20040128
  Receipt Date: 20040128
  Transmission Date: 20041129
  Serious: Yes (Hospitalization)
  Sender: FDA-Public Use
  Company Number: None

PATIENT
  Sex: Male
  Weight: 52.1637 kg

DRUGS (1)
  1. PROCRIT [Suspect]
     Indication: CARCINOMA
     Dosage: 40,000 IU SQ 1 WEEK
     Dates: start: 20010608, end: 20010621

REACTIONS (5)
  - HAEMATEMESIS [None]
  - HAEMOPTYSIS [None]
  - INFLAMMATION [None]
  - NEOPLASM [None]
  - RADIATION INJURY [None]
